FAERS Safety Report 9871905 (Version 2)
Quarter: 2014Q1

REPORT INFORMATION
  Report Type: Spontaneous
  Country: US (occurrence: US)
  Receive Date: 20140205
  Receipt Date: 20140205
  Transmission Date: 20141002
  Serious: Yes (Hospitalization)
  Sender: FDA-Public Use
  Company Number: US-B.I. PHARMACEUTICALS,INC./RIDGEFIELD-2013-BI-30305BP

PATIENT
  Sex: Male
  Weight: 88.45 kg

DRUGS (13)
  1. PRADAXA [Suspect]
     Indication: ATRIAL FIBRILLATION
     Dosage: 300 MG
     Route: 048
     Dates: start: 20120616, end: 20120825
  2. ALLOPURINOL [Concomitant]
     Indication: GOUT
  3. INDOMETHACIN [Concomitant]
     Dosage: 50 MG
  4. POTASSIUM CHLORIDE [Concomitant]
     Dosage: 60 MEQ
  5. ASPIRIN [Concomitant]
     Dosage: 81 MG
  6. NITROSTAT [Concomitant]
  7. METOPROLOL [Concomitant]
     Dosage: 25 MG
  8. LOVASTATIN [Concomitant]
     Dosage: 40 MG
     Route: 048
  9. BUMETANIDE [Concomitant]
     Route: 048
  10. FIORICET [Concomitant]
  11. COLACE [Concomitant]
  12. VITAMIN D [Concomitant]
     Dosage: 1000 U
     Route: 048
  13. EXTRA STRENGTH TYLENOL [Concomitant]

REACTIONS (2)
  - Gastrointestinal haemorrhage [Unknown]
  - Haemorrhagic anaemia [Unknown]
